FAERS Safety Report 6915923-9 (Version None)
Quarter: 2010Q3

REPORT INFORMATION
  Report Type: 
  Country: None (occurrence: None)
  Receive Date: 20100810
  Receipt Date: 20100802
  Transmission Date: 20110219
  Serious: Yes (Death, Hospitalization)
  Sender: FDA-Public Use
  Company Number: FI-MPIJNJ-2010-04164

PATIENT

DRUGS (8)
  1. VELCADE [Suspect]
     Indication: MULTIPLE MYELOMA
     Dosage: 2 MG, UNK
     Route: 042
     Dates: start: 20090731, end: 20090831
  2. DEXAMETHASONE [Suspect]
     Indication: MULTIPLE MYELOMA
     Dosage: 19.5 MG, UNK
     Dates: start: 20090801
  3. SOMAC [Concomitant]
     Indication: PROPHYLAXIS
     Dosage: 40 MG, UNK
  4. LYRICA [Concomitant]
     Indication: NEURALGIA
  5. AVELOX [Concomitant]
     Indication: PNEUMONIA
     Dosage: 400 MG, UNK
     Dates: end: 20090808
  6. NORVASC [Concomitant]
     Indication: HYPERTENSION
  7. CALCICHEW [Concomitant]
  8. MOVICOL                            /01053601/ [Concomitant]

REACTIONS (1)
  - PROGRESSIVE MULTIFOCAL LEUKOENCEPHALOPATHY [None]
